FAERS Safety Report 18987707 (Version 9)
Quarter: 2021Q3

REPORT INFORMATION
  Report Type: Report from Study
  Country: FR (occurrence: FR)
  Receive Date: 20210309
  Receipt Date: 20210923
  Transmission Date: 20211014
  Serious: Yes (Hospitalization, Other)
  Sender: FDA-Public Use
  Company Number: FR-JNJFOC-20210205498

PATIENT
  Age: 34 Year
  Sex: Female

DRUGS (13)
  1. PAROXETINE. [Concomitant]
     Active Substance: PAROXETINE
     Indication: ANTIDEPRESSANT THERAPY
     Route: 048
     Dates: start: 20201229, end: 20210324
  2. SPRAVATO [Suspect]
     Active Substance: ESKETAMINE
     Dosage: 84 MG, 16 TOTAL DOSES
     Dates: start: 20210301, end: 20210903
  3. MIRTAZAPINE. [Concomitant]
     Active Substance: MIRTAZAPINE
     Indication: ANTIDEPRESSANT THERAPY
     Dates: start: 20190101, end: 20190131
  4. TERALITHE [Concomitant]
     Active Substance: LITHIUM CARBONATE
     Indication: AFFECTIVE DISORDER
     Dates: start: 20201210
  5. SPRAVATO [Suspect]
     Active Substance: ESKETAMINE
     Indication: DEPRESSION
     Dosage: 56 MG, 5 TOTAL DOSES
     Dates: start: 20201229, end: 20210226
  6. MOCLAMINE [Concomitant]
     Active Substance: MOCLOBEMIDE
     Dates: start: 20210325
  7. VENLAFAXINE [Concomitant]
     Active Substance: VENLAFAXINE HYDROCHLORIDE
     Dates: start: 20200101, end: 20200131
  8. LITHIUM. [Concomitant]
     Active Substance: LITHIUM
     Indication: ANTIDEPRESSANT THERAPY
     Dates: start: 20201210, end: 20201228
  9. MIRTAZAPINE. [Concomitant]
     Active Substance: MIRTAZAPINE
     Dates: start: 20210325
  10. THERALENE [Concomitant]
     Active Substance: TRIMEPRAZINE
     Indication: AFFECTIVE DISORDER
     Dates: start: 20201210
  11. LORMETAZEPAM [Concomitant]
     Active Substance: LORMETAZEPAM
     Indication: INSOMNIA
     Dates: start: 20201210
  12. TOFRANIL [Concomitant]
     Active Substance: IMIPRAMINE HYDROCHLORIDE
     Dates: start: 20190101, end: 20190131
  13. MOCLAMINE [Concomitant]
     Active Substance: MOCLOBEMIDE
     Indication: ANTIDEPRESSANT THERAPY
     Dates: start: 20201204, end: 20201228

REACTIONS (18)
  - Suicidal ideation [Recovered/Resolved]
  - Morbid thoughts [Not Recovered/Not Resolved]
  - Decreased appetite [Recovered/Resolved]
  - Weight decreased [Not Recovered/Not Resolved]
  - Dissociative disorder [Recovered/Resolved]
  - Depressed mood [Not Recovered/Not Resolved]
  - Irritability [Not Recovered/Not Resolved]
  - Drug ineffective [Unknown]
  - Gastrointestinal motility disorder [Recovered/Resolved]
  - Feeling guilty [Recovered/Resolved]
  - Anhedonia [Not Recovered/Not Resolved]
  - Insomnia [Not Recovered/Not Resolved]
  - Affect lability [Not Recovered/Not Resolved]
  - Libido disorder [Recovered/Resolved]
  - Psychiatric symptom [Recovered/Resolved]
  - Off label use [Unknown]
  - Personality change [Not Recovered/Not Resolved]
  - Anxiety [Not Recovered/Not Resolved]

NARRATIVE: CASE EVENT DATE: 20201230
